FAERS Safety Report 4807174-9 (Version None)
Quarter: 2005Q4

REPORT INFORMATION
  Report Type: 
  Country: None (occurrence: None)
  Receive Date: 20051024
  Receipt Date: 20051012
  Transmission Date: 20060501
  Serious: Yes (Hospitalization)
  Sender: FDA-Public Use
  Company Number: US-AMGEN-US154106

PATIENT
  Age: 84 Year
  Sex: Female

DRUGS (12)
  1. ARANESP [Suspect]
     Indication: ANAEMIA
     Route: 058
     Dates: start: 20050801
  2. PREDNISONE TAB [Suspect]
     Dates: start: 20020101
  3. SOLU-CORTEF [Suspect]
     Route: 042
     Dates: start: 20050801
  4. PAXIL [Suspect]
     Dates: start: 20050823
  5. LOVENOX [Suspect]
     Route: 058
     Dates: start: 20050801
  6. MEGACE [Concomitant]
  7. ATENOLOL [Concomitant]
  8. INSULIN [Concomitant]
  9. REGLAN [Concomitant]
  10. PREVACID [Concomitant]
  11. DIFLUCAN [Concomitant]
  12. NPH INSULIN [Concomitant]

REACTIONS (3)
  - DYSARTHRIA [None]
  - DYSPHAGIA [None]
  - INTESTINAL PERFORATION [None]
